FAERS Safety Report 25210146 (Version 1)
Quarter: 2025Q2

REPORT INFORMATION
  Report Type: Spontaneous
  Country: CH (occurrence: CH)
  Receive Date: 20250417
  Receipt Date: 20250417
  Transmission Date: 20250716
  Serious: Yes (Other)
  Sender: JOHNSON AND JOHNSON
  Company Number: CH-JNJFOC-20250418074

PATIENT

DRUGS (4)
  1. RYBREVANT [Suspect]
     Active Substance: AMIVANTAMAB-VMJW
     Indication: Non-small cell lung cancer metastatic
     Route: 065
  2. CARBOPLATIN [Concomitant]
     Active Substance: CARBOPLATIN
  3. GEMCITABINE [Concomitant]
     Active Substance: GEMCITABINE
  4. PEMETREXED [Concomitant]
     Active Substance: PEMETREXED

REACTIONS (3)
  - Infusion related reaction [Unknown]
  - Diabetes insipidus [Unknown]
  - Off label use [Unknown]
